FAERS Safety Report 9781213 (Version 1)
Quarter: 2013Q4

REPORT INFORMATION
  Report Type: Spontaneous
  Country: US (occurrence: US)
  Receive Date: 20131224
  Receipt Date: 20131224
  Transmission Date: 20140711
  Serious: Yes (Death)
  Sender: FDA-Public Use
  Company Number: US-ROCHE-1318776

PATIENT
  Age: 52 Year
  Sex: Male

DRUGS (1)
  1. ERIVEDGE [Suspect]
     Indication: BASAL CELL CARCINOMA
     Dosage: BEEN ON IT FOR MONTHS, D/C
     Route: 065

REACTIONS (3)
  - Death [Fatal]
  - Muscle spasms [Unknown]
  - Alopecia [Unknown]
